FAERS Safety Report 11529449 (Version 1)
Quarter: 2015Q3

REPORT INFORMATION
  Report Type: Spontaneous
  Country: US (occurrence: None)
  Receive Date: 20150918
  Receipt Date: 20150918
  Transmission Date: 20151125
  Serious: Yes (Other)
  Sender: FDA-Public Use
  Company Number: None

PATIENT
  Age: 45 Year
  Sex: Female
  Weight: 97.52 kg

DRUGS (1)
  1. BELVIQ [Suspect]
     Active Substance: LORCASERIN HYDROCHLORIDE
     Indication: WEIGHT DECREASED
     Dosage: 1 PILL  BID  ORAL
     Route: 048

REACTIONS (3)
  - Nausea [None]
  - Headache [None]
  - Lethargy [None]

NARRATIVE: CASE EVENT DATE: 20150912
